FAERS Safety Report 24045380 (Version 2)
Quarter: 2024Q3

REPORT INFORMATION
  Report Type: Spontaneous
  Country: IT (occurrence: IT)
  Receive Date: 20240703
  Receipt Date: 20240723
  Transmission Date: 20241017
  Serious: Yes (Hospitalization, Other)
  Sender: REGENERON
  Company Number: IT-BAYER-2024A089737

PATIENT
  Age: 72 Year
  Sex: Male

DRUGS (1)
  1. EYLEA [Suspect]
     Active Substance: AFLIBERCEPT
     Indication: Neovascular age-related macular degeneration
     Dosage: TREATED IN LEFT EYE, EYLEA DOSES BEFORE THE EVENT 41, SOL FOR INJ IN PRE-FILLED SYR, 40 MG/ML
     Dates: start: 20240612, end: 20240612

REACTIONS (7)
  - Retinal haemorrhage [Recovered/Resolved with Sequelae]
  - Vitreous opacities [Recovered/Resolved with Sequelae]
  - Blindness [Recovered/Resolved with Sequelae]
  - Endophthalmitis [Recovering/Resolving]
  - Vitritis [Recovered/Resolved with Sequelae]
  - Retinal vasculitis [Recovered/Resolved with Sequelae]
  - Anterior chamber flare [Unknown]

NARRATIVE: CASE EVENT DATE: 20240614
